FAERS Safety Report 9829108 (Version 5)
Quarter: 2014Q4

REPORT INFORMATION
  Report Type: Spontaneous
  Country: US (occurrence: US)
  Receive Date: 20140119
  Receipt Date: 20141113
  Transmission Date: 20150529
  Serious: Yes (Hospitalization, Disabling, Other)
  Sender: FDA-Public Use
  Company Number: US-009507513-1106USA01815

PATIENT
  Sex: Female
  Weight: 66.67 kg

DRUGS (2)
  1. FOSAMAX [Suspect]
     Active Substance: ALENDRONATE SODIUM
     Indication: OSTEOPOROSIS
     Dosage: 70 MG, QW
     Route: 048
     Dates: start: 20020812, end: 20060103
  2. FOSAMAX [Suspect]
     Active Substance: ALENDRONATE SODIUM
     Indication: OSTEOPENIA
     Dosage: 35 MG, QW
     Route: 048
     Dates: start: 20020411, end: 200208

REACTIONS (26)
  - Intramedullary rod insertion [Unknown]
  - Hyperlipidaemia [Unknown]
  - Hypokalaemia [Unknown]
  - Left ventricular hypertrophy [Unknown]
  - Mood disorder due to a general medical condition [Unknown]
  - Femur fracture [Recovering/Resolving]
  - Osteoarthritis [Unknown]
  - Hyperglycaemia [Unknown]
  - Foot deformity [Unknown]
  - Hypertension [Unknown]
  - Contusion [Unknown]
  - Intramedullary rod insertion [Unknown]
  - Hypertension [Unknown]
  - Spinal disorder [Not Recovered/Not Resolved]
  - Femur fracture [Recovered/Resolved]
  - Ligament disorder [Unknown]
  - Haemorrhagic anaemia [Unknown]
  - Anxiety [Unknown]
  - Osteoarthritis [Unknown]
  - Atrioventricular block first degree [Unknown]
  - Dental caries [Unknown]
  - Gastrooesophageal reflux disease [Unknown]
  - Hypotension [Recovered/Resolved]
  - Temporomandibular joint syndrome [Unknown]
  - Depression [Unknown]
  - Haematoma [Unknown]

NARRATIVE: CASE EVENT DATE: 20031212
